FAERS Safety Report 16250657 (Version 1)
Quarter: 2019Q2

REPORT INFORMATION
  Report Type: Spontaneous
  Country: US (occurrence: US)
  Receive Date: 20190429
  Receipt Date: 20190429
  Transmission Date: 20190711
  Serious: Yes (Other)
  Sender: FDA-Public Use
  Company Number: US-TARO-2019TAR00311

PATIENT
  Age: 66 Year
  Sex: Female

DRUGS (5)
  1. LISINOPRIL. [Concomitant]
     Active Substance: LISINOPRIL
  2. DIGOXIN. [Concomitant]
     Active Substance: DIGOXIN
  3. AMIODARONE HCL TABLET 400 MG [Suspect]
     Active Substance: AMIODARONE HYDROCHLORIDE
     Indication: CARDIAC FAILURE CONGESTIVE
     Dosage: 200 MG, TWICE
     Route: 048
     Dates: start: 20190412, end: 20190412
  4. POTASSIUM [Concomitant]
     Active Substance: POTASSIUM
  5. METOLAZONE. [Concomitant]
     Active Substance: METOLAZONE

REACTIONS (5)
  - Chest pain [Not Recovered/Not Resolved]
  - Heart rate irregular [Not Recovered/Not Resolved]
  - Fatigue [Not Recovered/Not Resolved]
  - Off label use [Recovered/Resolved]
  - Angina pectoris [Not Recovered/Not Resolved]

NARRATIVE: CASE EVENT DATE: 20190412
